FAERS Safety Report 6625871-X (Version None)
Quarter: 2010Q1

REPORT INFORMATION
  Report Type: 
  Country: None (occurrence: None)
  Receive Date: 20100310
  Receipt Date: 20100227
  Transmission Date: 20100710
  Serious: Yes (Death, Hospitalization)
  Sender: FDA-Public Use
  Company Number: JP-BAXTER-2009BH018357

PATIENT
  Age: 72 Year
  Sex: Female
  Weight: 38 kg

DRUGS (3)
  1. DIANEAL LOW CALCIUM W/ DEXTROSE 1.5% [Suspect]
     Indication: PERITONEAL DIALYSIS
     Route: 033
     Dates: end: 20100226
  2. DIANEAL 137 W/ DEXTROSE 2.5% IN PLASTIC CONTAINER [Suspect]
     Indication: PERITONEAL DIALYSIS
     Route: 033
     Dates: start: 20090813
  3. OXYCONTIN [Concomitant]
     Indication: ARTERIOSCLEROSIS OBLITERANS
     Route: 048

REACTIONS (1)
  - CARDIAC FAILURE CONGESTIVE [None]
